FAERS Safety Report 9397168 (Version 1)
Quarter: 2013Q3

REPORT INFORMATION
  Report Type: Spontaneous
  Country: US (occurrence: None)
  Receive Date: 20130710
  Receipt Date: 20130710
  Transmission Date: 20140515
  Serious: Yes (Other)
  Sender: FDA-Public Use
  Company Number: None

PATIENT
  Age: 18 Year
  Sex: Female

DRUGS (2)
  1. BANANA BOAT (AVOBENZONE\OCTOCRYLENE\OXYBENZONE) [Suspect]
     Indication: SUNBURN
     Dosage: TID AND FOUR TIMES A DAY ON SKIN-TOPICAL
     Route: 061
     Dates: start: 20130705, end: 20130707
  2. BIRTH CONTROL PILLS [Concomitant]

REACTIONS (3)
  - Oropharyngeal pain [None]
  - Rash [None]
  - Swelling [None]
